FAERS Safety Report 19485326 (Version 1)
Quarter: 2021Q3

REPORT INFORMATION
  Report Type: Spontaneous
  Country: CA (occurrence: CA)
  Receive Date: 20210702
  Receipt Date: 20210702
  Transmission Date: 20211014
  Serious: Yes (Hospitalization)
  Sender: FDA-Public Use
  Company Number: CA-LUPIN PHARMACEUTICALS INC.-2021-10849

PATIENT
  Age: 45 Year
  Sex: Male

DRUGS (2)
  1. CALCIUM [Suspect]
     Active Substance: CALCIUM
     Indication: HYPOCALCAEMIA
     Dosage: UNK
     Route: 042
  2. CALCIUM [Suspect]
     Active Substance: CALCIUM
     Dosage: UNK
     Route: 061

REACTIONS (1)
  - Drug ineffective [Unknown]
